FAERS Safety Report 6998275-8 (Version None)
Quarter: 2010Q3

REPORT INFORMATION
  Report Type: 
  Country: None (occurrence: None)
  Receive Date: 20100920
  Receipt Date: 20090902
  Transmission Date: 20110219
  Serious: No
  Sender: FDA-Public Use
  Company Number: US-ASTRAZENECA-2009SE11622

PATIENT
  Sex: Female

DRUGS (2)
  1. SEROQUEL XR [Suspect]
     Route: 048
  2. XANAX [Concomitant]

REACTIONS (9)
  - AGITATION [None]
  - AMNESIA [None]
  - DEPRESSION [None]
  - FEELING HOT [None]
  - HYPERHIDROSIS [None]
  - MIGRAINE [None]
  - NAUSEA [None]
  - SUICIDAL BEHAVIOUR [None]
  - VOMITING [None]
